FAERS Safety Report 5982947-8 (Version None)
Quarter: 2008Q4

REPORT INFORMATION
  Report Type: 
  Country: None (occurrence: None)
  Receive Date: 20081208
  Receipt Date: 20071203
  Transmission Date: 20090506
  Serious: Yes (Hospitalization)
  Sender: FDA-Public Use
  Company Number: US-AMGEN-STX255238

PATIENT
  Sex: Female

DRUGS (2)
  1. ENBREL [Suspect]
     Indication: PSORIATIC ARTHROPATHY
     Route: 058
     Dates: start: 20070101
  2. ARAVA [Concomitant]
     Route: 065
     Dates: start: 20070101

REACTIONS (6)
  - HEADACHE [None]
  - LACRIMATION INCREASED [None]
  - LOCALISED INFECTION [None]
  - RESPIRATORY TRACT CONGESTION [None]
  - THROAT IRRITATION [None]
  - URINARY TRACT INFECTION [None]
